FAERS Safety Report 5240060-1 (Version None)
Quarter: 2007Q1

REPORT INFORMATION
  Report Type: 
  Country: None (occurrence: None)
  Receive Date: 20070216
  Receipt Date: 20070206
  Transmission Date: 20070707
  Serious: Yes (Other)
  Sender: FDA-Public Use
  Company Number: ES-PFIZER INC-2007009833

PATIENT
  Age: 54 Year
  Sex: Female

DRUGS (1)
  1. ATORVASTATIN [Suspect]
     Route: 048
     Dates: start: 20060101, end: 20070101

REACTIONS (1)
  - DERMATITIS [None]
